FAERS Safety Report 6592306-5 (Version None)
Quarter: 2010Q1

REPORT INFORMATION
  Report Type: 
  Country: None (occurrence: None)
  Receive Date: 20100221
  Receipt Date: 20090929
  Transmission Date: 20100710
  Serious: No
  Sender: FDA-Public Use
  Company Number: US-ALLERGAN-0913353US

PATIENT
  Age: 43 Year
  Sex: Female
  Weight: 68.027 kg

DRUGS (2)
  1. BOTOX COSMETIC [Suspect]
     Indication: SKIN WRINKLING
     Dosage: 30 UNITS, SINGLE
     Route: 030
     Dates: start: 20090911, end: 20090911
  2. BOTOX COSMETIC [Suspect]
     Dosage: 25 TO 35 UNITS, EVERY 3 MONTHS
     Route: 030

REACTIONS (3)
  - ASTHENIA [None]
  - DIZZINESS [None]
  - INFLUENZA LIKE ILLNESS [None]
